FAERS Safety Report 8336530-X (Version None)
Quarter: 2012Q2

REPORT INFORMATION
  Report Type: 
  Country: None (occurrence: None)
  Receive Date: 20120504
  Receipt Date: 20120430
  Transmission Date: 20120825
  Serious: Yes (Hospitalization, Other)
  Sender: FDA-Public Use
  Company Number: US-BAYER-201040029NA

PATIENT
  Age: 24 Year
  Sex: Female
  Weight: 77.1 kg

DRUGS (6)
  1. GUAIFENEX PSE [Concomitant]
     Dosage: UNK UNK, BID
  2. AMOXICILLIN [Concomitant]
     Dosage: 875 MG, BID
  3. YAZ [Suspect]
     Indication: ACNE
     Dosage: UNK
     Route: 048
     Dates: start: 19980101, end: 20080101
  4. YAZ [Suspect]
     Indication: CONTRACEPTION
  5. YAZ [Suspect]
     Indication: PREMENSTRUAL SYNDROME
  6. HYDROCOD/GG [Concomitant]

REACTIONS (9)
  - CEREBROVASCULAR ACCIDENT [None]
  - DYSGRAPHIA [None]
  - QUALITY OF LIFE DECREASED [None]
  - SPEECH DISORDER [None]
  - PULMONARY EMBOLISM [None]
  - MUSCULOSKELETAL PAIN [None]
  - EMOTIONAL DISTRESS [None]
  - HEMIPARESIS [None]
  - SLOW SPEECH [None]
